FAERS Safety Report 5091548-8 (Version None)
Quarter: 2006Q3

REPORT INFORMATION
  Report Type: 
  Country: None (occurrence: None)
  Receive Date: 20060824
  Receipt Date: 20060808
  Transmission Date: 20061208
  Serious: Yes (Hospitalization)
  Sender: FDA-Public Use
  Company Number: DSA_28407_2006

PATIENT
  Age: 52 Year
  Sex: Male

DRUGS (8)
  1. ATIVAN [Suspect]
     Indication: PSYCHOTIC DISORDER
     Dosage: DF PO
     Route: 048
  2. DEXAMETHASONE TAB [Suspect]
     Indication: MUSCULAR WEAKNESS
     Dosage: 8 MG Q DAY
     Dates: start: 20060407, end: 20060421
  3. DEXAMETHASONE TAB [Suspect]
     Indication: MUSCULAR WEAKNESS
     Dosage: 7 MG Q DAY
     Dates: start: 20060422, end: 20060429
  4. DEXAMETHASONE TAB [Suspect]
     Indication: MUSCULAR WEAKNESS
     Dosage: 6 MG Q DAY
     Dates: start: 20060430, end: 20060510
  5. DEXAMETHASONE TAB [Suspect]
     Indication: MUSCULAR WEAKNESS
     Dosage: 16 MG Q DAY
     Dates: start: 20060510, end: 20060510
  6. DEXAMETHASONE TAB [Suspect]
     Indication: MUSCULAR WEAKNESS
     Dosage: VAR Q DAY
     Dates: start: 20060511
  7. KEPPRA [Concomitant]
  8. AMBIEN [Concomitant]

REACTIONS (18)
  - ABNORMAL BEHAVIOUR [None]
  - AGGRESSION [None]
  - ANGER [None]
  - ASTHENIA [None]
  - CEREBRAL CALCIFICATION [None]
  - CONVULSION [None]
  - DELAYED EFFECTS OF RADIATION [None]
  - DRUG DOSE OMISSION [None]
  - EUPHORIC MOOD [None]
  - FACIAL PARESIS [None]
  - FATIGUE [None]
  - GERSTMANN'S SYNDROME [None]
  - LETHARGY [None]
  - LOSS OF CONSCIOUSNESS [None]
  - MOOD ALTERED [None]
  - NEOPLASM PROGRESSION [None]
  - NUCLEAR MAGNETIC RESONANCE IMAGING BRAIN ABNORMAL [None]
  - PSYCHOTIC DISORDER [None]
